FAERS Safety Report 24625315 (Version 1)
Quarter: 2024Q4

REPORT INFORMATION
  Report Type: Spontaneous
  Country: IT (occurrence: IT)
  Receive Date: 20241115
  Receipt Date: 20241115
  Transmission Date: 20250115
  Serious: Yes (Life-Threatening)
  Sender: MYLAN
  Company Number: None

PATIENT
  Age: 77 Year
  Sex: Male

DRUGS (6)
  1. RILUZOLE [Suspect]
     Active Substance: RILUZOLE
     Indication: Amyotrophic lateral sclerosis
     Dosage: 1 DOSAGE FORM, BID (1 TABLET OF 50MG 2 TIMES A DAY), BATCH NOT REPORTED
     Route: 048
  2. AMOXICILLIN\CLAVULANIC ACID [Concomitant]
     Active Substance: AMOXICILLIN\CLAVULANIC ACID
     Dosage: 1 DOSAGE FORM, Q8H (1 TABLET EVERY 8 HOURS)
     Route: 065
  3. EDOXABAN TOSYLATE [Concomitant]
     Active Substance: EDOXABAN TOSYLATE
     Dosage: 1 DOSAGE FORM, QD (1 TABLET PER DAY)
     Route: 065
  4. FLECAINIDE ACETATE [Concomitant]
     Active Substance: FLECAINIDE ACETATE
     Dosage: 0.5 DOSAGE FORM, BID (HALF A TABLET 2 TIMES A DAY)
     Route: 065
  5. TRAMADOL [Concomitant]
     Active Substance: TRAMADOL
     Dosage: 1 DOSAGE FORM, QD (1 TABLET PER DAY)
     Route: 065
  6. ACYCLOVIR [Concomitant]
     Active Substance: ACYCLOVIR
     Dosage: UNK, QD (5 APPLICATIONS PER DAY)
     Route: 065

REACTIONS (1)
  - Agranulocytosis [Recovered/Resolved]

NARRATIVE: CASE EVENT DATE: 20241022
